FAERS Safety Report 21440836 (Version 3)
Quarter: 2023Q2

REPORT INFORMATION
  Report Type: Report from Study
  Country: US (occurrence: US)
  Receive Date: 20221011
  Receipt Date: 20230412
  Transmission Date: 20230722
  Serious: No
  Sender: FDA-Public Use
  Company Number: US-ABBVIE-4144389

PATIENT
  Age: 51 Year
  Sex: Male
  Weight: 63 kg

DRUGS (9)
  1. DUOPA [Suspect]
     Active Substance: CARBIDOPA\LEVODOPA
     Indication: Parkinson^s disease
     Dosage: 1 CASSETTE VIA PEG-J FOR UP TO 16 HOURS EACH DAY. MORNING DOSE: 12.5 ML , CONTINUOUS DOSE: 4.2 ML...
     Route: 050
     Dates: start: 20211020
  2. DUOPA [Suspect]
     Active Substance: CARBIDOPA\LEVODOPA
     Dosage: 4.63-20MG, 1 CASSETTE UP TO 16 HOURS EACH DAY. MORNING DOSE: 12.5 ML , CONTINUOUS DOSE: 4.2 ML/HR...
     Route: 050
     Dates: start: 20221005
  3. GOCOVRI [Concomitant]
     Active Substance: AMANTADINE
     Indication: Dyskinesia
     Route: 065
  4. CARBIDOPA\LEVODOPA [Concomitant]
     Active Substance: CARBIDOPA\LEVODOPA
     Indication: Product used for unknown indication
     Route: 048
  5. RYTARY [Concomitant]
     Active Substance: CARBIDOPA\LEVODOPA
     Indication: Parkinson^s disease
     Route: 065
  6. ADVIL PM (DIPHENHYDRAMINE CITRATE\IBUPROFEN) [Concomitant]
     Active Substance: DIPHENHYDRAMINE CITRATE\IBUPROFEN
     Indication: Sleep disorder
     Route: 065
  7. MELATONIN [Concomitant]
     Active Substance: MELATONIN
     Indication: Sleep disorder
     Route: 065
  8. SINEMET [Concomitant]
     Active Substance: CARBIDOPA\LEVODOPA
     Indication: Parkinson^s disease
     Route: 048
  9. MIRTAZAPINE [Concomitant]
     Active Substance: MIRTAZAPINE
     Indication: Anxiety
     Route: 065

REACTIONS (9)
  - Speech disorder [Recovered/Resolved]
  - Dystonia [Recovered/Resolved]
  - Musculoskeletal discomfort [Unknown]
  - Dyskinesia [Recovered/Resolved]
  - Somnolence [Recovered/Resolved]
  - Neck pain [Unknown]
  - Therapeutic product effect decreased [Recovered/Resolved]
  - Disturbance in attention [Unknown]
  - Asthenia [Unknown]

NARRATIVE: CASE EVENT DATE: 20211019
